FAERS Safety Report 19908607 (Version 1)
Quarter: 2021Q4

REPORT INFORMATION
  Report Type: Spontaneous
  Country: US (occurrence: US)
  Receive Date: 20211001
  Receipt Date: 20211001
  Transmission Date: 20220304
  Serious: No
  Sender: FDA-Public Use
  Company Number: US-AMARIN PHARMA, INC.-2020AMR000567

PATIENT
  Age: 82 Year
  Sex: Female
  Weight: 84.9 kg

DRUGS (12)
  1. VASCEPA [Suspect]
     Active Substance: ICOSAPENT ETHYL
     Indication: Myocardial infarction
     Dates: start: 20200813
  2. GLIMEPIRIDE [Suspect]
     Active Substance: GLIMEPIRIDE
     Indication: Blood glucose abnormal
  3. ATORVASTATIN [Concomitant]
     Active Substance: ATORVASTATIN
     Indication: Blood cholesterol increased
     Route: 065
     Dates: start: 2020
  4. BRILINTA [Concomitant]
     Active Substance: TICAGRELOR
     Indication: Anticoagulant therapy
     Route: 065
     Dates: start: 2020
  5. CARVEDILOL [Concomitant]
     Active Substance: CARVEDILOL
     Indication: Blood pressure abnormal
     Route: 065
     Dates: start: 2020
  6. ATACAND [Concomitant]
     Active Substance: CANDESARTAN CILEXETIL
     Indication: Blood pressure abnormal
     Route: 065
     Dates: start: 2020
  7. HYDROCHLOROTHIAZIDE [Concomitant]
     Active Substance: HYDROCHLOROTHIAZIDE
     Indication: Blood pressure abnormal
     Route: 065
     Dates: start: 2020
  8. FLUOXETINE [Concomitant]
     Active Substance: FLUOXETINE HYDROCHLORIDE
     Indication: Nervous system disorder
     Route: 065
     Dates: start: 2020
  9. IRBESARTAN [Concomitant]
     Active Substance: IRBESARTAN
     Indication: Blood pressure abnormal
     Route: 065
     Dates: start: 2020
  10. OMEPRAZOLE [Concomitant]
     Active Substance: OMEPRAZOLE
     Indication: Product used for unknown indication
     Route: 065
     Dates: start: 2020
  11. ASPIRIN [Concomitant]
     Active Substance: ASPIRIN
     Indication: Product used for unknown indication
     Route: 065
     Dates: start: 2020
  12. AMLODIPINE [Concomitant]
     Active Substance: AMLODIPINE BESYLATE
     Indication: Product used for unknown indication
     Route: 065
     Dates: start: 2020

REACTIONS (2)
  - Blood glucose decreased [Unknown]
  - Diarrhoea [Unknown]

NARRATIVE: CASE EVENT DATE: 20200101
